FAERS Safety Report 12227020 (Version 1)
Quarter: 2016Q1

REPORT INFORMATION
  Report Type: Spontaneous
  Country: IT (occurrence: IT)
  Receive Date: 20160331
  Receipt Date: 20160331
  Transmission Date: 20160526
  Serious: Yes (Other)
  Sender: FDA-Public Use
  Company Number: IT-BAXTER-2016BAX016211

PATIENT
  Age: 52 Year
  Sex: Female

DRUGS (2)
  1. EPIRUBICIN HYDROCHLORIDE. [Suspect]
     Active Substance: EPIRUBICIN HYDROCHLORIDE
     Indication: SOFT TISSUE SARCOMA
     Route: 042
     Dates: start: 20160217, end: 20160217
  2. HOLOXAN [Suspect]
     Active Substance: IFOSFAMIDE
     Indication: SOFT TISSUE SARCOMA
     Route: 042
     Dates: start: 20160217, end: 20160217

REACTIONS (3)
  - Aphasia [Recovering/Resolving]
  - Sluggishness [Recovering/Resolving]
  - Confusional state [Recovering/Resolving]

NARRATIVE: CASE EVENT DATE: 20160217
